FAERS Safety Report 8846559 (Version 2)
Quarter: 2013Q1

REPORT INFORMATION
  Report Type: Spontaneous
  Country: PT (occurrence: PT)
  Receive Date: 20121017
  Receipt Date: 20130121
  Transmission Date: 20140127
  Serious: Yes (Disabling)
  Sender: FDA-Public Use
  Company Number: PT-GLAXOSMITHKLINE-B0838149A

PATIENT
  Sex: Male
  Weight: 101 kg

DRUGS (7)
  1. COMBODART [Suspect]
     Indication: BENIGN PROSTATIC HYPERPLASIA
     Dosage: 1CAP PER DAY
     Route: 048
     Dates: start: 201111, end: 20120906
  2. TERBINAFINE HCL [Suspect]
     Indication: ONYCHOMYCOSIS
     Dosage: 250MG PER DAY
     Route: 048
     Dates: start: 201111
  3. AEROMAX [Concomitant]
     Indication: NASAL POLYPS
     Dosage: 100MCG TWICE PER DAY
     Route: 045
     Dates: start: 2007
  4. MYCOSTER [Concomitant]
     Indication: ONYCHOMYCOSIS
     Route: 061
     Dates: start: 201111
  5. FENOFIBRATE [Concomitant]
     Indication: HYPERTRIGLYCERIDAEMIA
     Dosage: 145MG PER DAY
     Route: 048
     Dates: start: 2010
  6. BISOPROLOL FUMARATE [Concomitant]
     Indication: HYPERTENSION
     Dosage: 2.5MG PER DAY
     Route: 048
     Dates: start: 2005
  7. XYZAL [Concomitant]
     Indication: HYPERSENSITIVITY
     Dosage: 5MG PER DAY
     Route: 048
     Dates: start: 2010

REACTIONS (5)
  - Myalgia [Recovered/Resolved]
  - Mobility decreased [Recovered/Resolved]
  - Asthenia [Recovered/Resolved]
  - Erectile dysfunction [Recovered/Resolved]
  - Ejaculation failure [Recovered/Resolved]
